FAERS Safety Report 4298399-2 (Version None)
Quarter: 2004Q1

REPORT INFORMATION
  Report Type: 
  Country: None (occurrence: None)
  Receive Date: 20040218
  Receipt Date: 20030421
  Transmission Date: 20041129
  Serious: Yes (Other)
  Sender: FDA-Public Use
  Company Number: US-BRISTOL-MYERS SQUIBB COMPANY-12254793

PATIENT
  Age: 30 Year
  Sex: Female

DRUGS (7)
  1. STADOL [Suspect]
     Indication: MIGRAINE
     Dosage: RECEIVED 1 BOTTLE EVERY 3 DAYS;UP TO 1 BOTTLE DAILY
     Route: 045
     Dates: start: 19990101
  2. AVONEX [Concomitant]
     Dosage: INJECTION 1 X WEEKLY
  3. AMBIEN [Concomitant]
     Dosage: IN EVENING
  4. ELAVIL [Concomitant]
     Dosage: IN EVENING
  5. DILANTIN [Concomitant]
  6. ZANAFLEX [Concomitant]
  7. IMITREX [Concomitant]
     Route: 045

REACTIONS (2)
  - DEPENDENCE [None]
  - DEPRESSION [None]
